FAERS Safety Report 5792884-X (Version None)
Quarter: 2008Q2

REPORT INFORMATION
  Report Type: 
  Country: None (occurrence: None)
  Receive Date: 20080624
  Receipt Date: 20080602
  Transmission Date: 20081010
  Serious: Yes (Hospitalization)
  Sender: FDA-Public Use
  Company Number: 2008SI009413

PATIENT
  Age: 86 Year
  Sex: Male

DRUGS (22)
  1. FAMOTIDINE [Suspect]
     Dosage: 40 MG;DAILY
  2. FLUNISOLIDE [Suspect]
  3. ASPIRIN [Concomitant]
  4. CLOPIDOGREL [Concomitant]
  5. LISINOPRIL [Concomitant]
  6. METOPROLOL SUCCINATE [Concomitant]
  7. FUROSEMIDE [Suspect]
     Dosage: 20 MG;3 TIMES PER WEEK;
  8. ALBUTEROL [Suspect]
  9. IPRATROPIUM BROMIDE [Suspect]
  10. ISOSORBIDE MONONITRATE [Suspect]
     Dosage: 15 MG;DAILY;
  11. METOCLOPRAMIDE [Suspect]
     Dosage: 10 MG;4 TIMES A DAY;
  12. SERTRALINE [Suspect]
     Dosage: 75 MG;DAILY;
  13. NITROGLYCERIN [Suspect]
     Dosage: .4 MG; SUBLINGUAL
     Route: 060
  14. SIMVASTATIN [Suspect]
     Dosage: 40 MG;
  15. DONEPEZIL HCL [Suspect]
     Dosage: 10 MG;
  16. CYROHEPTADINE [Suspect]
     Dosage: 4 MG;DAILY
  17. INSULIN SUSPENSION ISOPHANE [Suspect]
     Indication: DIABETES MELLITUS
  18. INSULIN ASPART [Suspect]
     Indication: DIABETES MELLITUS
  19. MOMETASONE FUROATE [Suspect]
     Dosage: INHALATION
     Route: 055
  20. LEVETIRACETAM [Suspect]
     Indication: CONVULSION
     Dosage: 1000 MG;TWICE A DAY;
  21. MAGNESIUM GLUCONATE [Suspect]
     Dosage: 500 MG;DAILY
  22. MODAFINIL [Suspect]
     Indication: FATIGUE
     Dosage: 200 MG

REACTIONS (4)
  - ACUTE MYOCARDIAL INFARCTION [None]
  - ANOREXIA [None]
  - DEHYDRATION [None]
  - NAUSEA [None]
